FAERS Safety Report 9168633 (Version 2)
Quarter: 2013Q2

REPORT INFORMATION
  Report Type: Spontaneous
  Country: ES (occurrence: ES)
  Receive Date: 20130318
  Receipt Date: 20130424
  Transmission Date: 20140414
  Serious: Yes (Congenital Anomaly)
  Sender: FDA-Public Use
  Company Number: ES-UCBSA-080665

PATIENT
  Sex: Male
  Weight: 2.7 kg

DRUGS (4)
  1. CIMZIA [Suspect]
     Indication: RHEUMATOID ARTHRITIS
     Dosage: 200MG/15DAYS SINCE THEN
     Route: 064
     Dates: start: 201206, end: 20120625
  2. DOLQUINE [Concomitant]
     Dosage: 200MG/DAY
     Route: 064
     Dates: start: 20090218, end: 20130226
  3. DACORTIN [Concomitant]
     Dosage: 5MG/DAY
     Route: 064
     Dates: start: 20090212, end: 20130226
  4. NATECAL D FLASH [Concomitant]
     Dosage: 1500MG CALCIUM CARBONATE, 400UI CHOLECALCIFEROL/DAY
     Route: 064
     Dates: start: 20090212, end: 20130226

REACTIONS (2)
  - Right aortic arch [Unknown]
  - Foetal exposure during pregnancy [Recovered/Resolved]
